FAERS Safety Report 15842552 (Version 1)
Quarter: 2019Q1

REPORT INFORMATION
  Report Type: Spontaneous
  Country: US (occurrence: US)
  Receive Date: 20190118
  Receipt Date: 20190118
  Transmission Date: 20190417
  Serious: Yes (Hospitalization, Other)
  Sender: FDA-Public Use
  Company Number: US-BAXTER-2019BAX001113

PATIENT
  Sex: Female
  Weight: 120.2 kg

DRUGS (22)
  1. VALSARTAN AND HYDROCHLOROTHIAZIDE [Suspect]
     Active Substance: HYDROCHLOROTHIAZIDE\VALSARTAN
     Indication: HYPERTENSION
     Dosage: 320/25 MG ON AN UNSPECIFIED DATE IN 2009 OR 2010
     Route: 048
     Dates: end: 201807
  2. LOSARTAN POTASSIUM AND HYDROCHLOROTHIAZIDE [Suspect]
     Active Substance: HYDROCHLOROTHIAZIDE\LOSARTAN POTASSIUM
     Dosage: DRUG REINTRODUCED
     Route: 048
  3. SPIRONOLACTONE. [Suspect]
     Active Substance: SPIRONOLACTONE
     Indication: PRODUCT USED FOR UNKNOWN INDICATION
     Dosage: FOR MAY BE A YEAR AND STOPPED RECENTLY
     Route: 048
     Dates: end: 201808
  4. FLAGYL [Suspect]
     Active Substance: METRONIDAZOLE\METRONIDAZOLE HYDROCHLORIDE
     Indication: SEPSIS
     Route: 042
     Dates: start: 201808
  5. CHOLECALCIFEROL [Concomitant]
     Active Substance: CHOLECALCIFEROL
     Indication: PRODUCT USED FOR UNKNOWN INDICATION
     Dosage: TABLET
     Route: 048
  6. AMLODIPINE [Suspect]
     Active Substance: AMLODIPINE BESYLATE
     Indication: PRODUCT USED FOR UNKNOWN INDICATION
     Dosage: FOR A COUPLE OF YEARS
     Route: 065
  7. MELATONIN [Concomitant]
     Active Substance: MELATONIN
     Indication: NUTRITIONAL SUPPLEMENTATION
     Dosage: CAPSULE
     Route: 048
  8. LOSARTAN POTASSIUM. [Suspect]
     Active Substance: LOSARTAN POTASSIUM
     Indication: HYPERTENSION
     Route: 065
     Dates: start: 201807
  9. METOPROLOL. [Concomitant]
     Active Substance: METOPROLOL
     Indication: PRODUCT USED FOR UNKNOWN INDICATION
     Route: 065
  10. VITAMIN D3 [Concomitant]
     Active Substance: CHOLECALCIFEROL
     Indication: NUTRITIONAL SUPPLEMENTATION
     Dosage: TABLET
     Route: 065
  11. DIOVAN [Concomitant]
     Active Substance: VALSARTAN
     Indication: PRODUCT USED FOR UNKNOWN INDICATION
     Route: 065
  12. LOSARTAN POTASSIUM AND HYDROCHLOROTHIAZIDE [Suspect]
     Active Substance: HYDROCHLOROTHIAZIDE\LOSARTAN POTASSIUM
     Indication: PRODUCT USED FOR UNKNOWN INDICATION
     Dosage: 12.5/100 MILLIGRAMS (MG) 1 TABLET
     Route: 048
  13. OMEPRAZOLE. [Concomitant]
     Active Substance: OMEPRAZOLE
     Indication: PRODUCT USED FOR UNKNOWN INDICATION
     Dosage: TABLET
     Route: 065
  14. NITROGLYCERIN. [Concomitant]
     Active Substance: NITROGLYCERIN
     Indication: CHEST PAIN
     Dosage: EVERY 5 MINUTES AS NEEDED FOR CHEST PAIN NOT TO EXCEED 3 DOSES IN 15 MINUTES
     Route: 065
  15. ALBUTEROL. [Concomitant]
     Active Substance: ALBUTEROL
     Indication: PRODUCT USED FOR UNKNOWN INDICATION
     Dosage: INHALATION AEROSOL AT 2 PUFFS EVERY FOUR HOURS AS NEEDED AND 1 PUFF EVERY FOUR HOURS
     Route: 055
  16. FLONASE [Concomitant]
     Active Substance: FLUTICASONE PROPIONATE
     Indication: PRODUCT USED FOR UNKNOWN INDICATION
     Route: 065
  17. FLUTICASONE. [Concomitant]
     Active Substance: FLUTICASONE
     Indication: PRODUCT USED FOR UNKNOWN INDICATION
     Dosage: 50 MICROGRAM SPRAY AT 2 SPRAYS IN EACH NOSTRIL DAILY
     Route: 045
  18. 0.9% SODIUM CHLORIDE INJECTION [Suspect]
     Active Substance: SODIUM CHLORIDE
     Indication: PRODUCT USED FOR UNKNOWN INDICATION
     Route: 042
  19. AMLODIPINE [Suspect]
     Active Substance: AMLODIPINE BESYLATE
     Dosage: FOR THE LAST YEAR AND STOPPED RECENTLY
     Route: 065
     Dates: end: 201808
  20. FAMOTIDINE. [Concomitant]
     Active Substance: FAMOTIDINE
     Indication: PRODUCT USED FOR UNKNOWN INDICATION
     Dosage: 20 MG/ 5 ML
     Route: 065
  21. CIPRO [Suspect]
     Active Substance: CIPROFLOXACIN HYDROCHLORIDE
     Indication: SEPSIS
     Route: 065
     Dates: start: 201808
  22. ROSUVASTATIN. [Concomitant]
     Active Substance: ROSUVASTATIN
     Indication: PRODUCT USED FOR UNKNOWN INDICATION
     Dosage: HALF TABLET DAILY. 10 MG TABLET AT 5 MG ORALLY DAILY
     Route: 048

REACTIONS (30)
  - Lacunar infarction [Unknown]
  - Sepsis [Recovering/Resolving]
  - Headache [Recovering/Resolving]
  - Eyelid ptosis [Unknown]
  - Microangiopathy [Unknown]
  - Cardiomegaly [Unknown]
  - Acute kidney injury [Unknown]
  - Cardiac failure [Unknown]
  - Ear discomfort [Unknown]
  - Vision blurred [Unknown]
  - Acute respiratory failure [Unknown]
  - Lymphadenopathy mediastinal [Unknown]
  - Coronary artery disease [Unknown]
  - Visual impairment [Unknown]
  - Basal ganglia infarction [Unknown]
  - Oedema peripheral [Unknown]
  - Reflux gastritis [Not Recovered/Not Resolved]
  - Nasopharyngitis [Unknown]
  - Migraine [Unknown]
  - Diabetes mellitus [Unknown]
  - Diverticulum [Unknown]
  - Spinal osteoarthritis [Unknown]
  - Pericardial effusion [Unknown]
  - Hepatic steatosis [Unknown]
  - Spinal column stenosis [Unknown]
  - Sleep apnoea syndrome [Unknown]
  - Arteriosclerosis [Unknown]
  - Deep vein thrombosis [Unknown]
  - Dizziness [Not Recovered/Not Resolved]
  - Cerebral ventricle dilatation [Unknown]

NARRATIVE: CASE EVENT DATE: 2018
